FAERS Safety Report 11778256 (Version 1)
Quarter: 2015Q4

REPORT INFORMATION
  Report Type: Spontaneous
  Country: US (occurrence: None)
  Receive Date: 20151125
  Receipt Date: 20151125
  Transmission Date: 20160304
  Serious: Yes (Other)
  Sender: FDA-Public Use
  Company Number: US-MDT-ADR-2015-02236

PATIENT
  Age: 59 Year
  Sex: Female

DRUGS (2)
  1. FENTANYL INTRATHECAL 1200 MCG/ML [Suspect]
     Active Substance: FENTANYL
     Dosage: 640 MCG/DAY
  2. BACLOFEN INTRATHECAL 3000 MCG/ML [Suspect]
     Active Substance: BACLOFEN
     Dosage: 16000 MCG/DAY

REACTIONS (2)
  - Device malfunction [None]
  - Drug withdrawal syndrome [None]
